FAERS Safety Report 5083738-5 (Version None)
Quarter: 2006Q3

REPORT INFORMATION
  Report Type: 
  Country: None (occurrence: None)
  Receive Date: 20060818
  Receipt Date: 20060809
  Transmission Date: 20061208
  Serious: Yes (Other)
  Sender: FDA-Public Use
  Company Number: NL-ROCHE-459057

PATIENT
  Age: 32 Year
  Sex: Female

DRUGS (2)
  1. ACCUTANE [Suspect]
     Indication: ACNE
     Route: 048
     Dates: start: 20060420, end: 20060622
  2. DIANE-35 [Concomitant]
     Indication: CONTRACEPTION
     Dosage: STRENGTH: CYPROTERONACETATE 2 MG, ETHINYLESTRADIOL 0.035 MG PER TABLET.
     Route: 048

REACTIONS (3)
  - ABORTION INDUCED [None]
  - DRUG EXPOSURE DURING PREGNANCY [None]
  - PREGNANCY [None]
